FAERS Safety Report 7026312-3 (Version None)
Quarter: 2010Q4

REPORT INFORMATION
  Report Type: 
  Country: None (occurrence: None)
  Receive Date: 20101004
  Receipt Date: 20100927
  Transmission Date: 20110411
  Serious: Yes (Hospitalization, Other)
  Sender: FDA-Public Use
  Company Number: FR-PFIZER INC-2010021118

PATIENT
  Age: 62 Year
  Sex: Female
  Weight: 77 kg

DRUGS (6)
  1. PEGVISOMANT [Suspect]
     Indication: ACROMEGALY
     Dosage: 15 MG, 1X/DAY
     Dates: start: 20040908
  2. NOCTRAN 10 [Concomitant]
     Dosage: UNK
     Dates: start: 20041026
  3. LIPANOR [Concomitant]
     Dosage: UNK
     Dates: start: 20041026
  4. HYZAAR [Concomitant]
     Dosage: UNK
     Dates: start: 20041026
  5. TENORMIN [Concomitant]
     Dosage: UNK
     Dates: start: 20041026
  6. STAGID [Concomitant]
     Dosage: UNK
     Dates: start: 20071024

REACTIONS (3)
  - ENDOMETRIAL CANCER [None]
  - PHLEBITIS [None]
  - PULMONARY EMBOLISM [None]
